FAERS Safety Report 20692027 (Version 2)
Quarter: 2022Q2

REPORT INFORMATION
  Report Type: Report from Study
  Country: AU (occurrence: AU)
  Receive Date: 20220408
  Receipt Date: 20220413
  Transmission Date: 20220720
  Serious: Yes (Hospitalization)
  Sender: FDA-Public Use
  Company Number: AU-REGENERON PHARMACEUTICALS, INC.-2022-43433

PATIENT
  Age: 89 Year
  Sex: Male

DRUGS (22)
  1. CEMIPLIMAB [Suspect]
     Active Substance: CEMIPLIMAB
     Indication: Skin squamous cell carcinoma metastatic
     Dosage: 350 MG, Q3W
     Route: 042
     Dates: start: 20210107, end: 20211229
  2. CEMIPLIMAB [Suspect]
     Active Substance: CEMIPLIMAB
     Dosage: 350 MG, Q3W
     Route: 058
     Dates: start: 20220120, end: 20220303
  3. ALPHAGAN P [Concomitant]
     Active Substance: BRIMONIDINE TARTRATE
     Indication: Glaucoma
     Dosage: 1 DROP, BID
     Route: 047
     Dates: start: 20180621
  4. ATENOLOL [Concomitant]
     Active Substance: ATENOLOL
     Indication: Hypertension
     Dosage: 50 MG, QD
     Route: 048
     Dates: start: 20150129, end: 20210513
  5. ATENOLOL [Concomitant]
     Active Substance: ATENOLOL
     Dosage: 25 MG, BID
     Route: 048
     Dates: start: 20210513
  6. COVERSYL                           /00790702/ [Concomitant]
     Indication: Hypertension
     Dosage: 10 MG, QD
     Route: 048
     Dates: start: 20040301
  7. DBL ASPIRIN [Concomitant]
     Indication: Hypertension
     Dosage: 100 MG, QD
     Route: 048
     Dates: start: 20040324
  8. DEXAMETHASONE [Concomitant]
     Active Substance: DEXAMETHASONE
     Indication: Conjunctivitis allergic
     Dosage: 1 MG/ML, QD, CONJUNCTIVAL
     Dates: start: 20211028
  9. DIABEX [Concomitant]
     Active Substance: METFORMIN HYDROCHLORIDE
     Indication: Type 2 diabetes mellitus
     Dosage: 1000 MG, BID
     Route: 048
     Dates: start: 19991112
  10. FLUOROMETHOLONE [Concomitant]
     Active Substance: FLUOROMETHOLONE
     Indication: Conjunctivitis allergic
     Dosage: UNK, BID, CONJUNCTIVAL
     Dates: start: 202108
  11. BIMATOPROST\TIMOLOL [Concomitant]
     Active Substance: BIMATOPROST\TIMOLOL
     Indication: Glaucoma
     Dosage: 0.3 DROP, QD
     Route: 047
     Dates: start: 20180818
  12. HYDROCORTISONE [Concomitant]
     Active Substance: HYDROCORTISONE
     Indication: Rash maculo-papular
     Dosage: OTHER APPLICATION, AS NECESSARY
     Route: 061
     Dates: start: 20210311
  13. INSULIN ASPART W/INSULIN DEGLUDEC [Concomitant]
     Indication: Type 2 diabetes mellitus
     Dosage: 54 UNITS, QD
     Route: 058
     Dates: start: 20200326
  14. JANUVIA [Concomitant]
     Active Substance: SITAGLIPTIN PHOSPHATE
     Indication: Type 2 diabetes mellitus
     Dosage: 100 MG, QD
     Route: 048
     Dates: start: 20200326
  15. KEFLEX                             /00145501/ [Concomitant]
     Indication: Infection prophylaxis
     Dosage: 500 MG, QID
     Route: 048
     Dates: start: 20210505
  16. LERCANIDIPINE [Concomitant]
     Active Substance: LERCANIDIPINE
     Indication: Hypercholesterolaemia
     Dosage: 10 MG, QD
     Route: 048
     Dates: start: 20150129
  17. LIPEX                              /00848101/ [Concomitant]
     Indication: Hypercholesterolaemia
     Dosage: 40 MG, QD
     Route: 048
     Dates: start: 20060706
  18. METHYLPREDNISOLONE [Concomitant]
     Active Substance: METHYLPREDNISOLONE
     Indication: Rash maculo-papular
     Dosage: OTHER APPLICATION, AS NECESSARY
     Route: 061
     Dates: start: 20210715
  19. HYDROXOCOBALAMIN [Concomitant]
     Active Substance: HYDROXOCOBALAMIN
     Indication: Vitamin B12 deficiency
     Dosage: 1 MG, EVERY 3 MONTHS
     Route: 058
     Dates: start: 20150129
  20. PANADOL [Concomitant]
     Active Substance: ACETAMINOPHEN
     Indication: Cancer pain
     Dosage: 665 MG, AS NECESSARY
     Route: 048
     Dates: start: 20200129
  21. XARELTO [Concomitant]
     Active Substance: RIVAROXABAN
     Indication: Thrombosis
     Dosage: 15 MG, BID
     Route: 048
     Dates: start: 20210505
  22. TEMAZEPAM [Concomitant]
     Active Substance: TEMAZEPAM
     Indication: Insomnia
     Dosage: 10 MG, QD
     Route: 048
     Dates: start: 20100323

REACTIONS (1)
  - Pneumonitis [Not Recovered/Not Resolved]

NARRATIVE: CASE EVENT DATE: 20220324
